FAERS Safety Report 25274571 (Version 2)
Quarter: 2025Q2

REPORT INFORMATION
  Report Type: Spontaneous
  Country: US (occurrence: US)
  Receive Date: 20250506
  Receipt Date: 20250522
  Transmission Date: 20250717
  Serious: Yes (Other)
  Sender: PFIZER
  Company Number: US-PFIZER INC-202400201860

PATIENT
  Age: 74 Year
  Sex: Female

DRUGS (2)
  1. TUKYSA [Suspect]
     Active Substance: TUCATINIB
     Indication: Human epidermal growth factor receptor positive
     Dosage: 300 MG, 2X/DAY (150MG TAKE 2 TABS 2X PER DAY WITH FOOD)
  2. TUKYSA [Suspect]
     Active Substance: TUCATINIB
     Indication: Metastases to bone
     Dosage: TAKE 1 50MG TABLET BY MOUTH 2 TIMES DAILY
     Route: 048

REACTIONS (3)
  - Fatigue [Unknown]
  - Loss of personal independence in daily activities [Unknown]
  - Off label use [Unknown]
